FAERS Safety Report 8538520-0 (Version None)
Quarter: 2012Q3

REPORT INFORMATION
  Report Type: 
  Country: None (occurrence: None)
  Receive Date: 20120718
  Receipt Date: 20120718
  Transmission Date: 20120928
  Serious: Yes (Hospitalization, Other)
  Sender: FDA-Public Use
  Company Number: None

PATIENT
  Sex: Female
  Weight: 136.0791 kg

DRUGS (2)
  1. VOLTAREN [Suspect]
     Indication: ARTHRITIS
     Dosage: 100 GM 4X DAY KNEES DOWN
     Dates: start: 20100201, end: 20110801
  2. VOLTAREN [Suspect]
     Indication: LYMPHOEDEMA
     Dosage: 100 GM 4X DAY KNEES DOWN
     Dates: start: 20100201, end: 20110801

REACTIONS (2)
  - OEDEMA PERIPHERAL [None]
  - LYMPHOEDEMA [None]
